FAERS Safety Report 21833366 (Version 1)
Quarter: 2023Q1

REPORT INFORMATION
  Report Type: Spontaneous
  Country: PT (occurrence: PT)
  Receive Date: 20230107
  Receipt Date: 20230107
  Transmission Date: 20230417
  Serious: Yes (Hospitalization, Other)
  Sender: FDA-Public Use
  Company Number: PT-Accord-293400

PATIENT
  Age: 28 Year
  Sex: Female

DRUGS (1)
  1. FLUOXETINE [Suspect]
     Active Substance: FLUOXETINE HYDROCHLORIDE
     Indication: Product used for unknown indication
     Dosage: 1200 MILLIGRAM
     Route: 065

REACTIONS (4)
  - Electrocardiogram QT prolonged [Unknown]
  - Generalised tonic-clonic seizure [Recovered/Resolved]
  - Intentional overdose [Unknown]
  - Toxicity to various agents [Unknown]
